FAERS Safety Report 14947751 (Version 1)
Quarter: 2018Q2

REPORT INFORMATION
  Report Type: Spontaneous
  Country: US (occurrence: US)
  Receive Date: 20180508
  Receipt Date: 20180508
  Transmission Date: 20180711
  Serious: No
  Sender: FDA-Public Use
  Company Number: None

PATIENT
  Age: 73 Year
  Sex: Male

DRUGS (1)
  1. VOTRIENT [Suspect]
     Active Substance: PAZOPANIB HYDROCHLORIDE

REACTIONS (5)
  - Fatigue [None]
  - Diarrhoea [None]
  - Decreased appetite [None]
  - Blood pressure increased [None]
  - Dysphonia [None]

NARRATIVE: CASE EVENT DATE: 20180508
